FAERS Safety Report 22979160 (Version 5)
Quarter: 2024Q2

REPORT INFORMATION
  Report Type: Report from Study
  Country: US (occurrence: US)
  Receive Date: 20230925
  Receipt Date: 20240418
  Transmission Date: 20240716
  Serious: No
  Sender: FDA-Public Use
  Company Number: US-002147023-NVSC2023US203226

PATIENT
  Age: 83 Year
  Sex: Male
  Weight: 122.47 kg

DRUGS (2)
  1. COSENTYX [Suspect]
     Active Substance: SECUKINUMAB
     Indication: Psoriasis
     Dosage: UNK
     Route: 065
  2. HALOBETASOL PROPIONATE [Suspect]
     Active Substance: HALOBETASOL PROPIONATE
     Indication: Psoriasis
     Dosage: UNK
     Route: 065

REACTIONS (11)
  - Arthralgia [Unknown]
  - Impetigo [Unknown]
  - Erythema [Unknown]
  - Injection site erythema [Unknown]
  - Psoriasis [Unknown]
  - Scab [Unknown]
  - Skin erosion [Unknown]
  - Skin exfoliation [Unknown]
  - Skin plaque [Unknown]
  - Therapeutic product effect incomplete [Unknown]
  - Confusional state [Unknown]

NARRATIVE: CASE EVENT DATE: 20230717
